FAERS Safety Report 25471532 (Version 1)
Quarter: 2025Q2

REPORT INFORMATION
  Report Type: Spontaneous
  Country: US (occurrence: US)
  Receive Date: 20250624
  Receipt Date: 20250624
  Transmission Date: 20250717
  Serious: No
  Sender: GLENMARK
  Company Number: US-GLENMARK PHARMACEUTICALS-2025GMK097218

PATIENT

DRUGS (3)
  1. MUPIROCIN [Suspect]
     Active Substance: MUPIROCIN
     Indication: Infection prophylaxis
     Dosage: UNK, TID (ONCE IN THE MORNING, ONCE AT NOON, AND ONCE AT BEDTIME) FOR UP TO 10 DAYS
     Route: 045
     Dates: start: 20250113, end: 20250117
  2. MUPIROCIN [Suspect]
     Active Substance: MUPIROCIN
     Indication: Localised infection
  3. CLINDAMYCIN [Concomitant]
     Active Substance: CLINDAMYCIN
     Indication: Infection prophylaxis
     Dosage: UNK, TID
     Route: 045

REACTIONS (4)
  - Paranasal sinus hyposecretion [Not Recovered/Not Resolved]
  - Dry throat [Not Recovered/Not Resolved]
  - Product use issue [Unknown]
  - Product use in unapproved indication [Unknown]

NARRATIVE: CASE EVENT DATE: 20250113
